FAERS Safety Report 8044776-3 (Version None)
Quarter: 2012Q1

REPORT INFORMATION
  Report Type: 
  Country: None (occurrence: None)
  Receive Date: 20120113
  Receipt Date: 20120110
  Transmission Date: 20120608
  Serious: Yes (Hospitalization)
  Sender: FDA-Public Use
  Company Number: US-JNJFOC-20120103409

PATIENT
  Age: 69 Year
  Sex: Female

DRUGS (2)
  1. NUCYNTA [Suspect]
     Dosage: EVERY 4-6 HOURS
     Route: 065
  2. NUCYNTA [Suspect]
     Indication: POST HERPETIC NEURALGIA
     Dosage: 3X 100 MG
     Route: 065

REACTIONS (4)
  - UNRESPONSIVE TO STIMULI [None]
  - PYREXIA [None]
  - ACCIDENTAL OVERDOSE [None]
  - HYPOTENSION [None]
